FAERS Safety Report 12936451 (Version 6)
Quarter: 2017Q3

REPORT INFORMATION
  Report Type: Spontaneous
  Country: FR (occurrence: FR)
  Receive Date: 20161114
  Receipt Date: 20170718
  Transmission Date: 20171127
  Serious: Yes (Life-Threatening)
  Sender: FDA-Public Use
  Company Number: FR-ROCHE-1853286

PATIENT
  Age: 69 Year
  Sex: Female

DRUGS (5)
  1. DOLIPRANE [Concomitant]
     Active Substance: ACETAMINOPHEN
     Route: 065
  2. ZELBORAF [Suspect]
     Active Substance: VEMURAFENIB
     Indication: GENITOURINARY MELANOMA
     Route: 048
     Dates: start: 20161014, end: 20161025
  3. COTELLIC [Suspect]
     Active Substance: COBIMETINIB
     Indication: GENITOURINARY MELANOMA
     Route: 048
     Dates: start: 20161014, end: 20161025
  4. PERINDOPRIL [Concomitant]
     Active Substance: PERINDOPRIL
     Dosage: PER OS, AT 1 TABLET IN THE MORNING AND 2 TABLETS IN THE EVENING
     Route: 065
  5. OROCAL D3 [Concomitant]
     Active Substance: CALCIUM CARBONATE\CHOLECALCIFEROL
     Dosage: 500 MG/400 IU (CALCIUM+CHOLECALCIFEROL) PER OS AT 2 TABLETS ONCE PER DAY
     Route: 065

REACTIONS (1)
  - Drug reaction with eosinophilia and systemic symptoms [Recovered/Resolved]

NARRATIVE: CASE EVENT DATE: 20161021
